FAERS Safety Report 11724951 (Version 2)
Quarter: 2020Q1

REPORT INFORMATION
  Report Type: Spontaneous
  Country: US (occurrence: US)
  Receive Date: 20151111
  Receipt Date: 20200110
  Transmission Date: 20200409
  Serious: No
  Sender: FDA-Public Use
  Company Number: US-UCBSA-2014011469

PATIENT
  Sex: Female
  Weight: 68.49 kg

DRUGS (6)
  1. TEGRETOL [Concomitant]
     Active Substance: CARBAMAZEPINE
     Indication: GENERALISED TONIC-CLONIC SEIZURE
     Dosage: 200MG EVERY 12 HOURS
     Dates: start: 201309
  2. DIAZEPAM. [Concomitant]
     Active Substance: DIAZEPAM
     Indication: GENERALISED TONIC-CLONIC SEIZURE
     Dosage: STRENGTH: 5MG: HALF IN MORNING, HALF IN AFTERNOON AND 1 AT NIGHT
  3. MELOXICAM. [Concomitant]
     Active Substance: MELOXICAM
     Indication: PRODUCT USED FOR UNKNOWN INDICATION
     Dosage: 15 MG
  4. GABAPENTIN. [Concomitant]
     Active Substance: GABAPENTIN
     Indication: SEIZURE
     Dosage: 400 MG
  5. VIMPAT [Suspect]
     Active Substance: LACOSAMIDE
     Indication: GENERALISED TONIC-CLONIC SEIZURE
     Dosage: 150 MG EVERY 12 HOURS
     Dates: start: 2009, end: 201711
  6. OMEPRAZOLE. [Concomitant]
     Active Substance: OMEPRAZOLE
     Indication: PRODUCT USED FOR UNKNOWN INDICATION
     Dosage: 40 MG

REACTIONS (4)
  - Peripheral swelling [Recovered/Resolved]
  - Vaginal discharge [Recovered/Resolved]
  - Pain in extremity [Recovered/Resolved]
  - Vaginal odour [Recovered/Resolved]

NARRATIVE: CASE EVENT DATE: 2009
